FAERS Safety Report 17172567 (Version 1)
Quarter: 2019Q4

REPORT INFORMATION
  Report Type: Spontaneous
  Country: US (occurrence: US)
  Receive Date: 20191218
  Receipt Date: 20191218
  Transmission Date: 20200122
  Serious: Yes (Hospitalization, Other)
  Sender: FDA-Public Use
  Company Number: None

PATIENT
  Age: 77 Year
  Weight: 73.48 kg

DRUGS (7)
  1. ACTEMRA [Suspect]
     Active Substance: TOCILIZUMAB
     Indication: TEMPORAL ARTERITIS
     Route: 058
     Dates: start: 20180502, end: 20191209
  2. CALCIUM 500 + \FITAMIN D 500 MG [Concomitant]
  3. RECLAST [Concomitant]
     Active Substance: ZOLEDRONIC ACID
  4. PROPRANOLOL [Concomitant]
     Active Substance: PROPRANOLOL HYDROCHLORIDE
  5. VITAMIN C [Concomitant]
     Active Substance: ASCORBIC ACID
  6. ACTEMRA [Suspect]
     Active Substance: TOCILIZUMAB
  7. ASPIRIN 81 MG [Concomitant]
     Active Substance: ASPIRIN
     Dates: start: 20180611

REACTIONS (4)
  - Therapy cessation [None]
  - Diverticular perforation [None]
  - Abdominal pain lower [None]
  - Diverticulitis [None]

NARRATIVE: CASE EVENT DATE: 20191209
